FAERS Safety Report 9977754 (Version 1)
Quarter: 2014Q1

REPORT INFORMATION
  Report Type: Report from Study
  Country: US (occurrence: US)
  Receive Date: 20140306
  Receipt Date: 20140306
  Transmission Date: 20141002
  Serious: Yes (Other)
  Sender: FDA-Public Use
  Company Number: US-ABBVIE-13P-163-1162953-00

PATIENT
  Age: 71 Year
  Sex: Male
  Weight: 85.35 kg

DRUGS (14)
  1. HUMIRA [Suspect]
     Indication: CROHN^S DISEASE
     Dosage: PFS
     Route: 058
     Dates: start: 2003
  2. HUMIRA [Suspect]
     Route: 058
     Dates: end: 201309
  3. LANTUS [Concomitant]
     Indication: DIABETES MELLITUS
     Route: 058
  4. HUMALOG [Concomitant]
     Indication: DIABETES MELLITUS
     Dosage: WITH DINNER
     Route: 058
  5. VITAMIN B12 [Concomitant]
     Indication: PRODUCT USED FOR UNKNOWN INDICATION
     Route: 030
  6. KLOR-CON [Concomitant]
     Indication: MINERAL SUPPLEMENTATION
  7. LOVASA [Concomitant]
     Indication: PRODUCT USED FOR UNKNOWN INDICATION
  8. PROCARDIA [Concomitant]
     Indication: HYPERTENSION
  9. LASIX [Concomitant]
     Indication: FLUID RETENTION
  10. CLONIDINE [Concomitant]
     Indication: HYPERTENSION
  11. FLOVENT [Concomitant]
     Indication: RESPIRATORY DISORDER
     Dosage: CROHN^S IN THROAT
  12. BYSTOLIC [Concomitant]
     Indication: HYPERTENSION
  13. 6-MP [Concomitant]
     Indication: CROHN^S DISEASE
  14. PROTONIX [Concomitant]
     Indication: GASTROOESOPHAGEAL REFLUX DISEASE

REACTIONS (3)
  - Anal cancer [Not Recovered/Not Resolved]
  - Acne [Recovered/Resolved]
  - Haemorrhage [Recovered/Resolved]
